FAERS Safety Report 22151384 (Version 1)
Quarter: 2023Q1

REPORT INFORMATION
  Report Type: Report from Study
  Country: ZA (occurrence: ZA)
  Receive Date: 20230329
  Receipt Date: 20230329
  Transmission Date: 20230417
  Serious: Yes (Death)
  Sender: FDA-Public Use
  Company Number: ZA-BAYER-2023A040543

PATIENT
  Sex: Female

DRUGS (3)
  1. EYLEA [Suspect]
     Active Substance: AFLIBERCEPT
     Indication: Neovascular age-related macular degeneration
     Dosage: 1 DF, ONCE, SOLUTION FOR INJECTION 40 MG/ML
     Dates: start: 20230125, end: 20230125
  2. EYLEA [Suspect]
     Active Substance: AFLIBERCEPT
     Dosage: 1 UNK, SOLUTION FOR INJECTION 40 MG/ML
     Dates: start: 20230224, end: 20230224
  3. EYLEA [Suspect]
     Active Substance: AFLIBERCEPT
     Dosage: 1 UNK, SOLUTION FOR INJECTION 40 MG/ML
     Dates: start: 20230327, end: 20230327

REACTIONS (1)
  - Death [Fatal]
